FAERS Safety Report 8423221-X (Version None)
Quarter: 2012Q2

REPORT INFORMATION
  Report Type: 
  Country: None (occurrence: None)
  Receive Date: 20120608
  Receipt Date: 20120530
  Transmission Date: 20120825
  Serious: Yes (Other)
  Sender: FDA-Public Use
  Company Number: US-JNJFOC-20120601637

PATIENT
  Age: 74 Year
  Sex: Female
  Weight: 68.04 kg

DRUGS (2)
  1. PEPCID AC [Suspect]
     Route: 048
  2. PEPCID AC [Suspect]
     Indication: GASTROOESOPHAGEAL REFLUX DISEASE
     Dosage: 2 EVERY NIGHT FOR THE PAST 8 MONTHS
     Route: 048
     Dates: start: 20111001, end: 20120501

REACTIONS (1)
  - CHONDROCALCINOSIS PYROPHOSPHATE [None]
